FAERS Safety Report 15730726 (Version 1)
Quarter: 2018Q4

REPORT INFORMATION
  Report Type: Spontaneous
  Country: GB (occurrence: GB)
  Receive Date: 20181217
  Receipt Date: 20181217
  Transmission Date: 20190205
  Serious: Yes (Other)
  Sender: FDA-Public Use
  Company Number: GB-TEVA-2018-GB-987232

PATIENT
  Age: 41 Year
  Sex: Female

DRUGS (8)
  1. HYDROXOCOBALAMIN [Concomitant]
     Active Substance: HYDROXOCOBALAMIN
  2. GABAPENTIN. [Concomitant]
     Active Substance: GABAPENTIN
  3. COPAXONE [Suspect]
     Active Substance: GLATIRAMER ACETATE
     Indication: MULTIPLE SCLEROSIS
     Route: 058
     Dates: start: 20180719, end: 20181003
  4. ROPINIROLE HYDROCHLORIDE. [Concomitant]
     Active Substance: ROPINIROLE HYDROCHLORIDE
  5. COLECALCIFEROL [Concomitant]
     Active Substance: CHOLECALCIFEROL
  6. FOLIC ACID. [Concomitant]
     Active Substance: FOLIC ACID
  7. TIZANIDINE. [Concomitant]
     Active Substance: TIZANIDINE
  8. THIAMINE. [Concomitant]
     Active Substance: THIAMINE

REACTIONS (9)
  - Chest pain [Recovered/Resolved]
  - Urinary incontinence [Unknown]
  - Respiratory rate increased [Unknown]
  - Syncope [Unknown]
  - Anal incontinence [Unknown]
  - Myalgia [Recovered/Resolved]
  - Heart rate increased [Unknown]
  - Dysgeusia [Unknown]
  - Pain in extremity [Unknown]

NARRATIVE: CASE EVENT DATE: 20181003
